FAERS Safety Report 5244832-9 (Version None)
Quarter: 2007Q1

REPORT INFORMATION
  Report Type: 
  Country: None (occurrence: None)
  Receive Date: 20070216
  Receipt Date: 20070206
  Transmission Date: 20070707
  Serious: Yes (Disabling)
  Sender: FDA-Public Use
  Company Number: 2006BI015565

PATIENT
  Age: 26 Year
  Sex: Male
  Weight: 56 kg

DRUGS (3)
  1. AVONEX [Suspect]
     Indication: RELAPSING-REMITTING MULTIPLE SCLEROSIS
     Dosage: 30 UG;QW;IM
     Route: 030
     Dates: start: 20050915, end: 20061015
  2. NOVORAPID [Concomitant]
  3. LEVEMIR [Concomitant]

REACTIONS (4)
  - CONDITION AGGRAVATED [None]
  - DIABETIC RETINOPATHY [None]
  - RETINAL ANEURYSM [None]
  - RETINAL HAEMORRHAGE [None]
